FAERS Safety Report 8430061-4 (Version None)
Quarter: 2012Q2

REPORT INFORMATION
  Report Type: 
  Country: None (occurrence: None)
  Receive Date: 20120612
  Receipt Date: 20120604
  Transmission Date: 20120825
  Serious: Yes (Death)
  Sender: FDA-Public Use
  Company Number: AU-ROCHE-1071302

PATIENT
  Sex: Female
  Weight: 49 kg

DRUGS (2)
  1. TOPOTECAN [Concomitant]
  2. AVASTIN [Suspect]
     Indication: OVARIAN CANCER
     Route: 042
     Dates: start: 20120412, end: 20120503

REACTIONS (2)
  - CARDIAC ARREST [None]
  - PULSELESS ELECTRICAL ACTIVITY [None]
